FAERS Safety Report 5411600-4 (Version None)
Quarter: 2007Q3

REPORT INFORMATION
  Report Type: 
  Country: None (occurrence: None)
  Receive Date: 20070810
  Receipt Date: 20070419
  Transmission Date: 20080115
  Serious: Yes (Hospitalization, Other)
  Sender: FDA-Public Use
  Company Number: US-PFIZER INC-2007057305

PATIENT
  Sex: Female
  Weight: 59 kg

DRUGS (3)
  1. CELEBREX [Suspect]
     Indication: BACK PAIN
     Route: 048
     Dates: start: 20010523, end: 20010813
  2. CELEBREX [Suspect]
     Indication: ARTHRITIS
  3. CELEBREX [Suspect]
     Indication: PAIN MANAGEMENT

REACTIONS (5)
  - AMNESIA [None]
  - CEREBROVASCULAR ACCIDENT [None]
  - DEPRESSION [None]
  - THROMBOSIS [None]
  - ULCER [None]
